FAERS Safety Report 5158218-9 (Version None)
Quarter: 2006Q4

REPORT INFORMATION
  Report Type: 
  Country: None (occurrence: None)
  Receive Date: 20061121
  Receipt Date: 20061121
  Transmission Date: 20070319
  Serious: Yes (Other)
  Sender: FDA-Public Use
  Company Number: None

PATIENT
  Age: 65 Year
  Sex: Male
  Weight: 99.7913 kg

DRUGS (10)
  1. EXENATIDE [Suspect]
     Indication: DIABETES MELLITUS NON-INSULIN-DEPENDENT
     Dosage: 10 MCG BID SQ
     Route: 058
     Dates: start: 20060309, end: 20061001
  2. PIOGLITAZONE HCL [Concomitant]
  3. METFORMIN HCL [Concomitant]
  4. GLYBURIDE [Concomitant]
  5. AMLODIPINE [Concomitant]
  6. IRBESARTAN [Concomitant]
  7. ATENOLOL [Concomitant]
  8. CLONIDINE [Concomitant]
  9. ATORVASTATIN CALCIUM [Concomitant]
  10. VIAGRA [Concomitant]

REACTIONS (1)
  - OESOPHAGEAL ADENOCARCINOMA [None]
